FAERS Safety Report 4673188-5 (Version None)
Quarter: 2005Q2

REPORT INFORMATION
  Report Type: 
  Country: None (occurrence: None)
  Receive Date: 20050523
  Receipt Date: 20050523
  Transmission Date: 20051028
  Serious: Yes (Other)
  Sender: FDA-Public Use
  Company Number: None

PATIENT
  Age: 67 Year
  Sex: Male
  Weight: 98.4 kg

DRUGS (7)
  1. RAMIPRIL [Suspect]
  2. FLUTICAS 250/SALMETEROL [Concomitant]
  3. METOPROLOL TARTRATE [Concomitant]
  4. OMEPRAZOLE [Concomitant]
  5. SIMVASTATIN [Concomitant]
  6. IBUPROFEN [Concomitant]
  7. SILDENAFIL CITRATE [Concomitant]

REACTIONS (1)
  - COUGH [None]
